FAERS Safety Report 11178653 (Version 1)
Quarter: 2015Q2

REPORT INFORMATION
  Report Type: Spontaneous
  Country: US (occurrence: US)
  Receive Date: 20150610
  Receipt Date: 20150610
  Transmission Date: 20150821
  Serious: No
  Sender: FDA-Public Use
  Company Number: US-PFIZER INC-2015191113

PATIENT
  Age: 58 Year
  Sex: Male
  Weight: 95.24 kg

DRUGS (1)
  1. VIAGRA [Suspect]
     Active Substance: SILDENAFIL CITRATE
     Indication: ERECTILE DYSFUNCTION
     Dosage: HALF A PILL ABOUT 50 MG, AS NEEDED
     Dates: start: 2014, end: 20150531

REACTIONS (1)
  - Vision blurred [Unknown]
